FAERS Safety Report 6438994-5 (Version None)
Quarter: 2009Q4

REPORT INFORMATION
  Report Type: 
  Country: None (occurrence: None)
  Receive Date: 20091113
  Receipt Date: 20091105
  Transmission Date: 20100525
  Serious: Yes (Hospitalization)
  Sender: FDA-Public Use
  Company Number: US-WYE-H12032209

PATIENT
  Sex: Male
  Weight: 69.4 kg

DRUGS (12)
  1. TEMSIROLIMUS [Suspect]
     Indication: PANCREATIC CARCINOMA
     Route: 042
     Dates: start: 20090923, end: 20090930
  2. DOCUSATE SODIUM [Concomitant]
     Dosage: 100MG PRN
     Route: 048
  3. PROCHLORPERAZINE EDISYLATE [Concomitant]
     Route: 048
  4. ESOMEPRAZOLE MAGNESIUM [Concomitant]
     Route: 048
  5. OXYCODONE HCL [Concomitant]
     Route: 048
  6. LISINOPRIL [Concomitant]
     Route: 048
  7. TRAMADOL HCL [Concomitant]
     Route: 048
  8. CELECOXIB [Concomitant]
     Route: 048
  9. ESCITALOPRAM OXALATE [Concomitant]
     Route: 048
  10. MINOCYCLINE [Concomitant]
     Route: 048
  11. ERLOTINIB [Suspect]
     Indication: PANCREATIC CARCINOMA
     Route: 048
     Dates: start: 20090916, end: 20091007
  12. GLIPIZIDE [Concomitant]
     Route: 048

REACTIONS (3)
  - ANAEMIA [None]
  - DEHYDRATION [None]
  - MENTAL STATUS CHANGES [None]
